FAERS Safety Report 9277529 (Version 2)
Quarter: 2013Q2

REPORT INFORMATION
  Report Type: Spontaneous
  Country: US (occurrence: US)
  Receive Date: 20130508
  Receipt Date: 20130607
  Transmission Date: 20140414
  Serious: Yes (Other)
  Sender: FDA-Public Use
  Company Number: US-ELI_LILLY_AND_COMPANY-US201305000132

PATIENT
  Age: 41 Year
  Sex: Female
  Weight: 53.52 kg

DRUGS (7)
  1. CYMBALTA [Suspect]
     Indication: BACK PAIN
     Dosage: 60 MG, QD
     Route: 048
     Dates: start: 2005, end: 200610
  2. CYMBALTA [Suspect]
     Dosage: 60 MG, QD
     Route: 048
     Dates: start: 201205
  3. SYNTHROID [Concomitant]
     Dosage: UNK, UNKNOWN
     Route: 065
  4. CYTOMEL [Concomitant]
     Dosage: UNK, UNKNOWN
     Route: 065
  5. NORCO [Concomitant]
     Dosage: UNK, UNKNOWN
     Route: 065
  6. PNV [Concomitant]
     Dosage: UNK, UNKNOWN
     Route: 065
  7. DHA [Concomitant]
     Dosage: UNK, UNKNOWN
     Route: 065

REACTIONS (13)
  - Abortion spontaneous [Unknown]
  - Exposure during pregnancy [Recovered/Resolved]
  - Intentional drug misuse [Unknown]
  - Blood pressure increased [Unknown]
  - Tremor [Unknown]
  - Nervousness [Unknown]
  - Panic disorder [Unknown]
  - Heart rate increased [Unknown]
  - Impulse-control disorder [Unknown]
  - Dyspnoea [Unknown]
  - Agitation [Unknown]
  - Anxiety [Unknown]
  - Drug withdrawal syndrome [Unknown]
